FAERS Safety Report 10391492 (Version 2)
Quarter: 2014Q3

REPORT INFORMATION
  Report Type: Report from Study
  Country: US (occurrence: US)
  Receive Date: 20140818
  Receipt Date: 20140818
  Transmission Date: 20150326
  Serious: Yes (Death, Hospitalization, Other)
  Sender: FDA-Public Use
  Company Number: US-ASTELLAS-2014US009469

PATIENT
  Sex: Female

DRUGS (4)
  1. ERLOTINIB [Suspect]
     Active Substance: ERLOTINIB
     Indication: BREAST CANCER METASTATIC
  2. AVASTIN [Suspect]
     Active Substance: BEVACIZUMAB
     Indication: BREAST CANCER METASTATIC
  3. ERLOTINIB [Suspect]
     Active Substance: ERLOTINIB
     Indication: BREAST CANCER FEMALE
     Dosage: 10 MG/KG,D1 PLUS D15), UNKNOWN FREQ.
     Route: 042
     Dates: start: 20050523, end: 20050629
  4. AVASTIN [Suspect]
     Active Substance: BEVACIZUMAB
     Indication: BREAST CANCER FEMALE
     Dosage: UNK, UNKNOWN FREQ.
     Route: 065

REACTIONS (6)
  - Small intestinal obstruction [Unknown]
  - Deep vein thrombosis [Unknown]
  - Abdominal pain [Unknown]
  - General physical health deterioration [Unknown]
  - Malignant neoplasm progression [Fatal]
  - Ascites [Unknown]
